FAERS Safety Report 14756480 (Version 1)
Quarter: 2018Q2

REPORT INFORMATION
  Report Type: Report from Study
  Country: IE (occurrence: IE)
  Receive Date: 20180413
  Receipt Date: 20180413
  Transmission Date: 20180711
  Serious: Yes (Death, Other)
  Sender: FDA-Public Use
  Company Number: IE-AMGEN-IRLSL2018050314

PATIENT
  Age: 93 Year
  Sex: Male

DRUGS (12)
  1. ARANESP [Suspect]
     Active Substance: DARBEPOETIN ALFA
     Indication: CHRONIC KIDNEY DISEASE
     Dosage: 30 MUG, QMO
     Route: 050
     Dates: start: 20171103
  2. BISOP [Concomitant]
     Dosage: 3.75 MG, QD
     Route: 050
  3. OMEPRAZOLE. [Concomitant]
     Active Substance: OMEPRAZOLE
     Dosage: 40 MG, QD
     Route: 050
  4. LYRICA [Concomitant]
     Active Substance: PREGABALIN
     Dosage: 25 MG, QD (AT NIGHT)
     Route: 050
  5. PHOSEX [Concomitant]
     Dosage: 1000 MG, BID
     Route: 050
  6. PROSTOP [Concomitant]
     Dosage: 11.25 MG, Q3MO
     Route: 050
  7. FUROSEMIDE. [Concomitant]
     Active Substance: FUROSEMIDE
     Dosage: 80 MG, QD
     Route: 050
  8. FEXOFENADINE [Concomitant]
     Active Substance: FEXOFENADINE\FEXOFENADINE HYDROCHLORIDE
     Dosage: 120 MG, QD
     Route: 050
  9. ZAROXOLYN [Concomitant]
     Active Substance: METOLAZONE
     Dosage: 2.5 MG, Q3WK
     Route: 050
  10. ALLOPURINOL. [Concomitant]
     Active Substance: ALLOPURINOL
     Dosage: 100 MG, QD
     Route: 050
  11. ONE ALPHA [Concomitant]
     Active Substance: ALFACALCIDOL
     Dosage: 0.25 MUG, QD
     Route: 050
  12. ELIQUIS [Concomitant]
     Active Substance: APIXABAN
     Dosage: 2.5 MG, BID
     Route: 050

REACTIONS (1)
  - Death [Fatal]

NARRATIVE: CASE EVENT DATE: 20180407
